FAERS Safety Report 8494364-X (Version None)
Quarter: 2012Q2

REPORT INFORMATION
  Report Type: 
  Country: None (occurrence: None)
  Receive Date: 20120628
  Receipt Date: 20120619
  Transmission Date: 20120825
  Serious: Yes (Hospitalization)
  Sender: FDA-Public Use
  Company Number: 2012SP018335

PATIENT
  Age: 20 Year
  Sex: Female

DRUGS (3)
  1. PULMICORT [Suspect]
     Dosage: INH
     Route: 055
     Dates: start: 20120331
  2. DESLORATADINE [Suspect]
     Dates: start: 20120331
  3. SINGULAIR [Suspect]
     Dates: start: 20120331

REACTIONS (2)
  - CONDITION AGGRAVATED [None]
  - IDIOPATHIC THROMBOCYTOPENIC PURPURA [None]
